FAERS Safety Report 9315100 (Version 3)
Quarter: 2013Q3

REPORT INFORMATION
  Report Type: Report from Study
  Country: BR (occurrence: BR)
  Receive Date: 20130529
  Receipt Date: 20130814
  Transmission Date: 20140515
  Serious: Yes (Death, Hospitalization)
  Sender: FDA-Public Use
  Company Number: BR-ROCHE-1100978

PATIENT
  Age: 82 Year
  Sex: Female
  Weight: 89 kg

DRUGS (11)
  1. ACTEMRA [Suspect]
     Indication: RHEUMATOID ARTHRITIS
     Dosage: TOTAL MONTHLY DOSE OF 720 MG, 8 MG/KG
     Route: 042
     Dates: start: 20120531
  2. ACTEMRA [Suspect]
     Route: 042
     Dates: start: 20121022, end: 20121219
  3. ACTEMRA [Suspect]
     Route: 042
     Dates: start: 20121122
  4. MODURETIC [Concomitant]
     Indication: BLOOD PRESSURE
     Route: 065
  5. HYDROXYCHLOROQUINE [Concomitant]
     Route: 048
  6. BUDESONIDE [Concomitant]
     Route: 055
  7. FORMOTEROL [Concomitant]
     Route: 055
  8. HYDROCHLOROTHIAZIDE [Concomitant]
     Route: 048
  9. AMILORIDE [Concomitant]
     Route: 048
  10. BUMETANIDE [Concomitant]
     Route: 048
  11. VALSARTAN [Concomitant]
     Route: 048

REACTIONS (7)
  - Pneumonia [Fatal]
  - Urinary tract infection [Fatal]
  - Infection [Fatal]
  - Lung disorder [Fatal]
  - Septic shock [Unknown]
  - Influenza [Unknown]
  - Wheezing [Unknown]
